FAERS Safety Report 4358614-3 (Version None)
Quarter: 2004Q2

REPORT INFORMATION
  Report Type: 
  Country: None (occurrence: None)
  Receive Date: 20040514
  Receipt Date: 20040507
  Transmission Date: 20050107
  Serious: Yes (Death)
  Sender: FDA-Public Use
  Company Number: HQWYE769210MAY04

PATIENT
  Age: 38 Year
  Sex: Male

DRUGS (2)
  1. RAPAMUNE [Suspect]
     Indication: PROPHYLAXIS AGAINST TRANSPLANT REJECTION
     Dosage: 1 MG 1X PER 1 DAY
     Route: 048
     Dates: start: 20010507, end: 20030310
  2. IMMUNOSUPPRESSIVE AGENTS (IMMUNOSUPPRESSIVE AGENTS, ) [Suspect]

REACTIONS (2)
  - HEPATIC NEOPLASM MALIGNANT [None]
  - METASTASIS [None]
